FAERS Safety Report 7417749-9 (Version None)
Quarter: 2011Q2

REPORT INFORMATION
  Report Type: 
  Country: None (occurrence: None)
  Receive Date: 20110408
  Receipt Date: 20110328
  Transmission Date: 20111010
  Serious: Yes (Other)
  Sender: FDA-Public Use
  Company Number: TRP_07624_2011

PATIENT
  Age: 47 Year
  Sex: Male

DRUGS (3)
  1. PAROXETINE HCL [Concomitant]
  2. PEGINTERFERON ALFA-2B [Suspect]
     Indication: HEPATITIS C
     Dosage: (DF)
  3. RIBAVIRIN [Suspect]
     Indication: HEPATITIS C
     Dosage: (DF)

REACTIONS (1)
  - CONVULSION [None]
